FAERS Safety Report 23084254 (Version 2)
Quarter: 2023Q4

REPORT INFORMATION
  Report Type: Report from Study
  Country: US (occurrence: US)
  Receive Date: 20231019
  Receipt Date: 20231025
  Transmission Date: 20240109
  Serious: Yes (Hospitalization)
  Sender: FDA-Public Use
  Company Number: US-ABBVIE-5387772

PATIENT
  Age: 76 Year
  Sex: Male
  Weight: 65.5 kg

DRUGS (24)
  1. VENETOCLAX [Suspect]
     Active Substance: VENETOCLAX
     Indication: Myelodysplastic syndrome
     Dosage: DAYS 1 - 14 OF EACH 28-DAY CYCLE
     Route: 048
     Dates: start: 20210830
  2. AZACITIDINE [Suspect]
     Active Substance: AZACITIDINE
     Indication: Myelodysplastic syndrome
     Dosage: 7 DAYS WITHIN THE FIRST 9 CALENDAR DAYS OF EACH 28-DAY CYCLE
     Route: 042
     Dates: start: 20210830, end: 20220830
  3. AZACITIDINE [Suspect]
     Active Substance: AZACITIDINE
     Indication: Myelodysplastic syndrome
     Dosage: 7 DAYS WITHIN THE FIRST 9 CALENDAR DAYS OF EACH 28-DAY CYCLE
     Route: 042
     Dates: start: 20221114
  4. CYANOCOBALAMIN/FOLIC ACID/VIT B6 [Concomitant]
     Indication: Vitamin supplementation
     Route: 048
     Dates: start: 20181129
  5. DIPHENHYDRAMINE [Concomitant]
     Active Substance: DIPHENHYDRAMINE
     Indication: Insomnia
     Dosage: TIME INTERVAL: AS NECESSARY
     Route: 048
     Dates: start: 20210817
  6. DIPHENHYDRAMINE [Concomitant]
     Active Substance: DIPHENHYDRAMINE
     Indication: Insomnia
     Dosage: TIME INTERVAL: AS NECESSARY
     Route: 048
     Dates: start: 20210907
  7. METOPROLOL SUCCINATE [Concomitant]
     Active Substance: METOPROLOL SUCCINATE
     Indication: Hypertension
     Route: 048
     Dates: start: 20170919
  8. ACETAMINOPHEN [Concomitant]
     Active Substance: ACETAMINOPHEN
     Indication: Prophylaxis
     Dosage: TIME INTERVAL: AS NECESSARY
     Route: 048
     Dates: start: 20210830
  9. ACYCLOVIR [Concomitant]
     Active Substance: ACYCLOVIR
     Indication: Neutrophil count decreased
     Route: 048
     Dates: start: 20210910
  10. ACYCLOVIR [Concomitant]
     Active Substance: ACYCLOVIR
     Indication: Neutrophil count decreased
     Dosage: TIME INTERVAL: 0.33333333 DAYS
     Route: 048
     Dates: start: 20220411
  11. POLYETHYLENE GLYCOL [Concomitant]
     Active Substance: POLYETHYLENE GLYCOL
     Indication: Constipation
     Dosage: TIME INTERVAL: AS NECESSARY
     Route: 048
     Dates: start: 20210830
  12. PRAVASTATIN [Concomitant]
     Active Substance: PRAVASTATIN
     Indication: Hyperlipidaemia
     Route: 048
     Dates: start: 20210830
  13. MULTIVITAMIN WITH MINERALS/LUTEIN MULTIVITAMIN [Concomitant]
     Indication: Vitamin supplementation
     Route: 048
     Dates: start: 20210901
  14. FENTANYL [Concomitant]
     Active Substance: FENTANYL\FENTANYL CITRATE
     Indication: Sedative therapy
     Dosage: TIME INTERVAL: AS NECESSARY
     Route: 042
     Dates: start: 20210820
  15. HEPARIN [Concomitant]
     Active Substance: HEPARIN SODIUM
     Indication: Catheter management
     Dosage: TIME INTERVAL: AS NECESSARY: DOSAGE: 500 U
     Route: 042
     Dates: start: 20210809
  16. AMLODIPINE [Concomitant]
     Active Substance: AMLODIPINE BESYLATE
     Indication: Hypertension
     Route: 048
     Dates: start: 20211103
  17. LEVOFLOXACIN [Concomitant]
     Active Substance: LEVOFLOXACIN
     Indication: Infection prophylaxis
     Route: 048
     Dates: start: 20211129
  18. NOXAFIL [Concomitant]
     Active Substance: POSACONAZOLE
     Indication: Infection prophylaxis
     Dosage: TIME INTERVAL: 0.33333333 DAYS
     Route: 048
     Dates: start: 20211220
  19. ONDANSETRON [Concomitant]
     Active Substance: ONDANSETRON
     Indication: Prophylaxis of nausea and vomiting
     Dosage: TIME INTERVAL: AS NECESSARY
     Route: 048
     Dates: start: 20220321
  20. LIDOCAINE [Concomitant]
     Active Substance: LIDOCAINE
     Indication: Gastrointestinal disorder
     Dosage: TIME INTERVAL: AS NECESSARY: (Q6H PRN) (MUCOUS MEMBRANE)
     Dates: start: 20220503
  21. LIDOCAINE [Concomitant]
     Active Substance: LIDOCAINE
     Indication: Gastrointestinal disorder
     Dosage: TIME INTERVAL: AS NECESSARY: Q.2-3H PRN
     Route: 045
     Dates: start: 20230123
  22. SULFAMETHOXAZOLE-TRIMETHOPRI [Concomitant]
     Indication: Infection prophylaxis
     Route: 048
     Dates: start: 20220228
  23. ACETAMINOPHEN\HYDROCODONE [Concomitant]
     Active Substance: ACETAMINOPHEN\HYDROCODONE
     Indication: Oral pain
     Dosage: TIME INTERVAL: AS NECESSARY
     Route: 048
     Dates: start: 20220505, end: 20230320
  24. GABAPENTIN [Concomitant]
     Active Substance: GABAPENTIN
     Indication: Gastrointestinal disorder
     Route: 048
     Dates: start: 20220502, end: 20220601

REACTIONS (1)
  - Anaemia [Not Recovered/Not Resolved]

NARRATIVE: CASE EVENT DATE: 20220512
